FAERS Safety Report 6613529-2 (Version None)
Quarter: 2010Q1

REPORT INFORMATION
  Report Type: 
  Country: None (occurrence: None)
  Receive Date: 20100304
  Receipt Date: 20100225
  Transmission Date: 20100710
  Serious: Yes (Death, Hospitalization, Other)
  Sender: FDA-Public Use
  Company Number: FR-CELGENEUS-056-21880-09122159

PATIENT
  Sex: Male
  Weight: 76 kg

DRUGS (7)
  1. REVLIMID [Suspect]
     Indication: MULTIPLE MYELOMA
     Route: 048
     Dates: start: 20091119, end: 20091210
  2. REVLIMID [Suspect]
     Route: 048
     Dates: start: 20090820
  3. DEXAMETHASONE [Suspect]
     Indication: MULTIPLE MYELOMA
     Route: 048
     Dates: start: 20091119
  4. IZILOX [Concomitant]
     Route: 065
     Dates: start: 20091201
  5. IZILOX [Concomitant]
  6. GELOFUSINE [Concomitant]
     Indication: DRUG USE FOR UNKNOWN INDICATION
     Route: 065
  7. HEPARIN [Concomitant]
     Indication: DRUG USE FOR UNKNOWN INDICATION
     Route: 065

REACTIONS (2)
  - ACUTE RESPIRATORY DISTRESS SYNDROME [None]
  - PNEUMONIA INFLUENZAL [None]
